FAERS Safety Report 5108571-7 (Version None)
Quarter: 2006Q3

REPORT INFORMATION
  Report Type: 
  Country: None (occurrence: None)
  Receive Date: 20060919
  Receipt Date: 20060628
  Transmission Date: 20061208
  Serious: Yes (Life-Threatening)
  Sender: FDA-Public Use
  Company Number: AU-MERCK-0606AUS00198

PATIENT
  Age: 75 Year
  Sex: Female
  Weight: 39 kg

DRUGS (3)
  1. FOSAMAX [Suspect]
     Indication: OSTEOPOROSIS
     Route: 048
     Dates: start: 20060418, end: 20060608
  2. FAMOTIDINE [Concomitant]
     Indication: HYPERCHLORHYDRIA
     Route: 065
     Dates: start: 20050101
  3. CALCIUM CARBONATE [Concomitant]
     Indication: OSTEOPOROSIS
     Route: 065

REACTIONS (7)
  - ALLERGIC OEDEMA [None]
  - CARDIAC ARREST [None]
  - CHEST PAIN [None]
  - HYPERTENSION [None]
  - LOSS OF CONSCIOUSNESS [None]
  - LYMPHADENOPATHY [None]
  - SYNCOPE [None]
